FAERS Safety Report 8977586 (Version 2)
Quarter: 2013Q1

REPORT INFORMATION
  Report Type: Spontaneous
  Country: IT (occurrence: IT)
  Receive Date: 20121219
  Receipt Date: 20130211
  Transmission Date: 20140127
  Serious: Yes (Death)
  Sender: FDA-Public Use
  Company Number: IT-CELGENEUS-083-21880-12121818

PATIENT
  Age: 79 Year
  Sex: Female

DRUGS (12)
  1. REVLIMID [Suspect]
     Indication: PLASMA CELL MYELOMA
     Route: 048
     Dates: start: 20121008
  2. REVLIMID [Suspect]
     Route: 048
     Dates: start: 20121105, end: 20121125
  3. REVLIMID [Suspect]
     Route: 048
     Dates: end: 20121130
  4. CLEXANE [Concomitant]
     Indication: THROMBOSIS PROPHYLAXIS
     Route: 050
     Dates: start: 20121025
  5. CLEXANE [Concomitant]
     Indication: THROMBOSIS PROPHYLAXIS
  6. ARANESP [Concomitant]
     Indication: ANAEMIA
     Route: 065
     Dates: start: 20121025
  7. ARANESP [Concomitant]
     Indication: PROPHYLAXIS
  8. ZYLORIC [Concomitant]
     Indication: PROPHYLAXIS
     Route: 065
     Dates: start: 20121025, end: 20121130
  9. ZYLORIC [Concomitant]
     Indication: PROPHYLAXIS
  10. SOLDESAM [Concomitant]
     Indication: PROPHYLAXIS
     Route: 065
     Dates: start: 20121025
  11. LASIX [Concomitant]
     Indication: PROPHYLAXIS
     Route: 065
     Dates: start: 20121025
  12. BACTRIM [Concomitant]
     Indication: ANTIBIOTIC PROPHYLAXIS
     Route: 065
     Dates: start: 20121025

REACTIONS (1)
  - Death [Fatal]
